FAERS Safety Report 9382750 (Version 1)
Quarter: 2013Q3

REPORT INFORMATION
  Report Type: Spontaneous
  Country: US (occurrence: US)
  Receive Date: 20130703
  Receipt Date: 20130703
  Transmission Date: 20140515
  Serious: No
  Sender: FDA-Public Use
  Company Number: US-009507513-1307USA000305

PATIENT
  Age: 75 Year
  Sex: Female
  Weight: 68.27 kg

DRUGS (6)
  1. OXYTROL [Suspect]
  2. TOVIAZ [Concomitant]
  3. VESICARE [Concomitant]
  4. DETROL LA [Concomitant]
     Dosage: 04 MG AT AN UNKNOWN FREQUENCY
     Route: 048
     Dates: start: 2012
  5. DETROL LA [Concomitant]
     Dosage: 02 MG AT AN UNKNOWN FREQUENCY
     Route: 048
     Dates: end: 2012
  6. ACTONEL [Concomitant]
     Indication: BONE DISORDER

REACTIONS (3)
  - Abdominal pain upper [Unknown]
  - Constipation [Unknown]
  - Memory impairment [Unknown]
